FAERS Safety Report 6907090-2 (Version None)
Quarter: 2010Q3

REPORT INFORMATION
  Report Type: 
  Country: None (occurrence: None)
  Receive Date: 20100804
  Receipt Date: 20100728
  Transmission Date: 20110219
  Serious: Yes (Hospitalization)
  Sender: FDA-Public Use
  Company Number: JP-ABBOTT-10P-087-0653327-00

PATIENT
  Age: 69 Year
  Sex: Male

DRUGS (7)
  1. LEUPROLIDE ACETATE [Suspect]
     Indication: PROSTATE CANCER STAGE II
     Route: 058
     Dates: start: 20060725, end: 20070109
  2. LEUPROLIDE ACETATE [Suspect]
     Dates: start: 20070425, end: 20080123
  3. LEUPROLIDE ACETATE [Suspect]
     Route: 058
     Dates: start: 20080520
  4. BICALUTAMIDE [Concomitant]
     Indication: PROSTATE CANCER STAGE II
     Route: 048
     Dates: start: 20060718, end: 20080519
  5. ADALAT CC [Concomitant]
     Indication: HYPERTENSION
     Route: 048
  6. NU-LOTAN [Concomitant]
     Indication: HYPERTENSION
     Route: 048
  7. AMLODIPINE BESYLATE [Concomitant]
     Indication: HYPERTENSION
     Route: 048
     Dates: start: 20080623

REACTIONS (2)
  - BENIGN PROSTATIC HYPERPLASIA [None]
  - ERYTHEMA MULTIFORME [None]
